FAERS Safety Report 13363982 (Version 1)
Quarter: 2017Q1

REPORT INFORMATION
  Report Type: Spontaneous
  Country: GB (occurrence: GB)
  Receive Date: 20170323
  Receipt Date: 20170323
  Transmission Date: 20170429
  Serious: Yes (Other)
  Sender: FDA-Public Use
  Company Number: PHFR2017GB001873

PATIENT
  Age: 83 Year
  Sex: Female

DRUGS (1)
  1. PROMETAX [Suspect]
     Active Substance: RIVASTIGMINE
     Indication: DEMENTIA
     Dosage: 4.6 MG, QD PATCH 5 (CM2)
     Route: 062

REACTIONS (2)
  - Communication disorder [Unknown]
  - Drug administration error [Unknown]
